FAERS Safety Report 7299289-3 (Version None)
Quarter: 2011Q1

REPORT INFORMATION
  Report Type: 
  Country: None (occurrence: None)
  Receive Date: 20110217
  Receipt Date: 20110204
  Transmission Date: 20110831
  Serious: Yes (Death, Other)
  Sender: FDA-Public Use
  Company Number: DE-ELI_LILLY_AND_COMPANY-DE201012002189

PATIENT
  Sex: Male
  Weight: 58 kg

DRUGS (6)
  1. FOLIC ACID [Concomitant]
     Dosage: 0.4 MG, UNKNOWN
     Route: 065
  2. DEXAMETHASONE [Concomitant]
     Dosage: ONE DAY BEFORE AND ONE DAY AFTER CHEMOTHERAPY
     Route: 048
  3. ZOMETA [Concomitant]
     Dosage: 3 MG, UNK
     Route: 042
  4. CARBOPLATIN [Concomitant]
     Dosage: UNK, UNKNOWN
     Route: 065
  5. ALIMTA [Suspect]
     Indication: ADENOCARCINOMA
     Dosage: 790 MG, EVERY THREE WEEKS
     Route: 042
     Dates: start: 20100927
  6. VITAMIN B-12 [Concomitant]
     Dosage: UNK, UNKNOWN
     Route: 030
     Dates: start: 20100920

REACTIONS (4)
  - BONE MARROW FAILURE [None]
  - RENAL FAILURE [None]
  - SEPSIS [None]
  - AGRANULOCYTOSIS [None]
